FAERS Safety Report 19830862 (Version 1)
Quarter: 2021Q3

REPORT INFORMATION
  Report Type: Spontaneous
  Country: US (occurrence: US)
  Receive Date: 20210913
  Receipt Date: 20210913
  Transmission Date: 20211014
  Serious: Yes (Other)
  Sender: FDA-Public Use
  Company Number: None

PATIENT
  Age: 67 Year
  Sex: Female
  Weight: 78.93 kg

DRUGS (1)
  1. LEVOTHYROXINE SODIUM. [Suspect]
     Active Substance: LEVOTHYROXINE SODIUM
     Indication: HYPOTHYROIDISM
     Dosage: ?          QUANTITY:88 UG MICROGRAM(S);OTHER FREQUENCY:ONCE AM;?
     Dates: start: 20140424, end: 20210908

REACTIONS (3)
  - Product substitution issue [None]
  - Therapeutic response changed [None]
  - Drug ineffective [None]

NARRATIVE: CASE EVENT DATE: 20210406
